FAERS Safety Report 18078281 (Version 2)
Quarter: 2020Q3

REPORT INFORMATION
  Report Type: Spontaneous
  Country: ML (occurrence: ML)
  Receive Date: 20200727
  Receipt Date: 20200826
  Transmission Date: 20201103
  Serious: Yes (Death)
  Sender: FDA-Public Use
  Company Number: NVSC2020ML209972

PATIENT
  Age: 47 Year
  Sex: Male
  Weight: 74 kg

DRUGS (1)
  1. GLIVEC [Suspect]
     Active Substance: IMATINIB MESYLATE
     Indication: GASTROINTESTINAL STROMAL TUMOUR
     Dosage: 400 MG(4 X 100MG TABLETS) (EXPIRATION DATE: FEB 2020)
     Route: 048
     Dates: start: 20171210, end: 20200618

REACTIONS (5)
  - Abdominal distension [Fatal]
  - Anaemia [Unknown]
  - Death [Fatal]
  - Asthenia [Unknown]
  - General physical health deterioration [Fatal]

NARRATIVE: CASE EVENT DATE: 20200618
